FAERS Safety Report 12323569 (Version 1)
Quarter: 2016Q2

REPORT INFORMATION
  Report Type: Spontaneous
  Country: US (occurrence: US)
  Receive Date: 20160502
  Receipt Date: 20160502
  Transmission Date: 20160815
  Serious: No
  Sender: FDA-Public Use
  Company Number: US-WARNER CHILCOTT, LLC-1051284

PATIENT
  Age: 63 Year
  Sex: Female

DRUGS (1)
  1. ATELVIA [Suspect]
     Active Substance: RISEDRONATE SODIUM
     Indication: BONE DENSITY ABNORMAL
     Route: 048
     Dates: start: 20150619, end: 20150619

REACTIONS (4)
  - Headache [Recovering/Resolving]
  - Arthralgia [Recovering/Resolving]
  - Pain [Recovered/Resolved]
  - Nausea [Recovering/Resolving]

NARRATIVE: CASE EVENT DATE: 20150619
